FAERS Safety Report 18332349 (Version 1)
Quarter: 2020Q3

REPORT INFORMATION
  Report Type: Spontaneous
  Country: US (occurrence: US)
  Receive Date: 20200930
  Receipt Date: 20200930
  Transmission Date: 20201103
  Serious: Yes (Death, Other)
  Sender: FDA-Public Use
  Company Number: US-PURDUE-USA-2020-0167999

PATIENT
  Age: 72 Year
  Sex: Male

DRUGS (2)
  1. OXYCODONE HYDROCHLORIDE (SIMILAR TO NDA 22?272) [Suspect]
     Active Substance: OXYCODONE HYDROCHLORIDE
     Indication: PAIN IN EXTREMITY
     Dosage: UNK
     Route: 048
  2. OXYCONTIN [Suspect]
     Active Substance: OXYCODONE HYDROCHLORIDE
     Indication: PAIN IN EXTREMITY
     Dosage: UNK
     Route: 048

REACTIONS (9)
  - Antisocial behaviour [Unknown]
  - Hip fracture [Unknown]
  - Fall [Unknown]
  - Hypersomnia [Unknown]
  - Pain in extremity [Unknown]
  - Cardiopulmonary failure [Fatal]
  - Depression [Unknown]
  - Unevaluable event [Unknown]
  - Drug dependence [Unknown]

NARRATIVE: CASE EVENT DATE: 20140924
